FAERS Safety Report 7682985-3 (Version None)
Quarter: 2011Q3

REPORT INFORMATION
  Report Type: 
  Country: None (occurrence: None)
  Receive Date: 20110815
  Receipt Date: 20110808
  Transmission Date: 20111222
  Serious: Yes (Life-Threatening)
  Sender: FDA-Public Use
  Company Number: AU-ROCHE-796598

PATIENT
  Age: 99 Year
  Sex: Female

DRUGS (4)
  1. DIAZEPAM [Suspect]
     Dosage: FREQUENCY: ONE TIME
     Route: 065
     Dates: start: 20110719, end: 20110720
  2. SPIRIVA [Concomitant]
  3. PERINDOPRIL ERBUMINE [Concomitant]
  4. RISPERDAL [Concomitant]

REACTIONS (2)
  - PRODUCT SUBSTITUTION ISSUE [None]
  - SWOLLEN TONGUE [None]
